FAERS Safety Report 14552978 (Version 1)
Quarter: 2018Q1

REPORT INFORMATION
  Report Type: Spontaneous
  Country: US (occurrence: US)
  Receive Date: 20180216
  Receipt Date: 20180216
  Transmission Date: 20180509
  Serious: Yes (Hospitalization)
  Sender: FDA-Public Use
  Company Number: None

PATIENT
  Age: 60 Year
  Sex: Male

DRUGS (13)
  1. PREDNISONE 5MG [Suspect]
     Active Substance: PREDNISONE
     Indication: RENAL TRANSPLANT
     Route: 048
     Dates: start: 20161122
  2. NOVOLOG [Concomitant]
     Active Substance: INSULIN ASPART
  3. SCOPOLAMINE [Concomitant]
     Active Substance: SCOPOLAMINE
  4. CLAV [Concomitant]
  5. OXYCODONE [Concomitant]
     Active Substance: OXYCODONE
  6. TACROLIMUS 1MG [Suspect]
     Active Substance: TACROLIMUS
     Indication: RENAL TRANSPLANT
     Route: 048
     Dates: start: 20161102
  7. AMIODARONE [Concomitant]
     Active Substance: AMIODARONE
  8. PRAVASTATIN. [Concomitant]
     Active Substance: PRAVASTATIN
  9. MYCOPHENOLIC [Concomitant]
     Active Substance: MYCOPHENOLIC ACID
  10. PANTOPRAZOLE [Concomitant]
     Active Substance: PANTOPRAZOLE
  11. FUROSEMIDE. [Concomitant]
     Active Substance: FUROSEMIDE
  12. RAMIPRIL. [Concomitant]
     Active Substance: RAMIPRIL
  13. TAMSULOSIN [Concomitant]
     Active Substance: TAMSULOSIN

REACTIONS (1)
  - Cardiac operation [None]

NARRATIVE: CASE EVENT DATE: 20180215
